FAERS Safety Report 23950376 (Version 1)
Quarter: 2024Q2

REPORT INFORMATION
  Report Type: Spontaneous
  Country: FR (occurrence: FR)
  Receive Date: 20240607
  Receipt Date: 20240607
  Transmission Date: 20240716
  Serious: Yes (Hospitalization)
  Sender: FDA-Public Use
  Company Number: None

PATIENT
  Age: 79 Year
  Sex: Male
  Weight: 68 kg

DRUGS (1)
  1. SUGAMMADEX SODIUM [Suspect]
     Active Substance: SUGAMMADEX SODIUM
     Indication: Anaesthesia reversal
     Dosage: 300 MG
     Route: 042
     Dates: start: 20240522, end: 20240522

REACTIONS (2)
  - Drug ineffective [Recovered/Resolved]
  - Suspected product quality issue [Recovered/Resolved]

NARRATIVE: CASE EVENT DATE: 20240522
